FAERS Safety Report 4959339-3 (Version None)
Quarter: 2006Q1

REPORT INFORMATION
  Report Type: 
  Country: None (occurrence: None)
  Receive Date: 20060201
  Receipt Date: 20051123
  Transmission Date: 20060701
  Serious: No
  Sender: FDA-Public Use
  Company Number: 2005PV004779

PATIENT
  Age: 56 Year
  Sex: Female
  Weight: 122.4712 kg

DRUGS (4)
  1. BYETTA [Suspect]
     Indication: DIABETES MELLITUS NON-INSULIN-DEPENDENT
     Dosage: 5 MCG; BID; SC
     Route: 058
     Dates: start: 20051031
  2. PRANDIN [Concomitant]
  3. GLYBURIDE (MICRONIZED) [Concomitant]
  4. LORTAB [Concomitant]

REACTIONS (7)
  - FEELING JITTERY [None]
  - GASTROOESOPHAGEAL REFLUX DISEASE [None]
  - NAUSEA [None]
  - SINUS CONGESTION [None]
  - SINUS DISORDER [None]
  - SOMNOLENCE [None]
  - WEIGHT DECREASED [None]
